FAERS Safety Report 6391340-8 (Version None)
Quarter: 2009Q4

REPORT INFORMATION
  Report Type: 
  Country: None (occurrence: None)
  Receive Date: 20091007
  Receipt Date: 20090928
  Transmission Date: 20100525
  Serious: Yes (Other)
  Sender: FDA-Public Use
  Company Number: GB-ASTRAZENECA-2009SE16188

PATIENT
  Age: 26 Year
  Sex: Female

DRUGS (6)
  1. QUETIAPINE XL [Suspect]
     Route: 048
  2. QUETIAPINE XL [Suspect]
     Route: 048
     Dates: start: 20090707
  3. SERTRALINE HCL [Suspect]
     Route: 048
     Dates: end: 20090912
  4. SERTRALINE HCL [Suspect]
     Route: 048
  5. DIAZEPAM [Concomitant]
     Route: 048
     Dates: start: 20071001
  6. TRAZODONE HYDROCHLORIDE [Concomitant]
     Route: 048
     Dates: end: 20090914

REACTIONS (2)
  - DIARRHOEA [None]
  - SEROTONIN SYNDROME [None]
